FAERS Safety Report 7743109-7 (Version None)
Quarter: 2011Q3

REPORT INFORMATION
  Report Type: 
  Country: None (occurrence: None)
  Receive Date: 20110912
  Receipt Date: 20110829
  Transmission Date: 20111222
  Serious: Yes (Death, Other)
  Sender: FDA-Public Use
  Company Number: IT-ROCHE-799709

PATIENT

DRUGS (3)
  1. IDARUBICIN HCL [Suspect]
     Indication: ACUTE PROMYELOCYTIC LEUKAEMIA
     Route: 042
  2. TRETINOIN [Suspect]
     Indication: ACUTE PROMYELOCYTIC LEUKAEMIA
     Dosage: INDUCTION PHASE
     Route: 048
  3. TRETINOIN [Suspect]
     Dosage: FOR 15 DAYS EVERY 3 MONTHS. MAINTENANCE TREATMENT
     Route: 048

REACTIONS (3)
  - INFECTION [None]
  - RETINOIC ACID SYNDROME [None]
  - HAEMORRHAGE [None]
